FAERS Safety Report 13618569 (Version 2)
Quarter: 2017Q2

REPORT INFORMATION
  Report Type: Report from Study
  Country: CA (occurrence: CA)
  Receive Date: 20170606
  Receipt Date: 20170612
  Transmission Date: 20170830
  Serious: Yes (Other)
  Sender: FDA-Public Use
  Company Number: CA-JNJFOC-20170527507

PATIENT
  Age: 47 Year
  Sex: Female
  Weight: 63.5 kg

DRUGS (2)
  1. REMICADE [Suspect]
     Active Substance: INFLIXIMAB
     Indication: CROHN^S DISEASE
     Route: 042
     Dates: start: 201406
  2. REMICADE [Suspect]
     Active Substance: INFLIXIMAB
     Indication: CROHN^S DISEASE
     Route: 042
     Dates: start: 20140410

REACTIONS (8)
  - Nephrolithiasis [Not Recovered/Not Resolved]
  - Off label use [Unknown]
  - Incorrect dose administered [Unknown]
  - Diarrhoea [Not Recovered/Not Resolved]
  - Alopecia [Not Recovered/Not Resolved]
  - Drug ineffective [Not Recovered/Not Resolved]
  - Dyspnoea [Recovered/Resolved]
  - Hypoaesthesia [Unknown]

NARRATIVE: CASE EVENT DATE: 20140410
